FAERS Safety Report 12856705 (Version 1)
Quarter: 2016Q4

REPORT INFORMATION
  Report Type: Spontaneous
  Country: US (occurrence: US)
  Receive Date: 20161018
  Receipt Date: 20161018
  Transmission Date: 20170207
  Serious: No
  Sender: FDA-Public Use
  Company Number: None

PATIENT
  Age: 50 Year
  Sex: Female
  Weight: 74 kg

DRUGS (2)
  1. ONE A DAY VITAMINS FOR WOMEN [Concomitant]
  2. FLUCONAZOLE TABLET 150MG CITRON PHARMA [Suspect]
     Active Substance: FLUCONAZOLE
     Indication: VULVOVAGINAL MYCOTIC INFECTION
     Dosage: ?          QUANTITY:H MI;?
     Route: 048
     Dates: start: 20160928, end: 20160928

REACTIONS (6)
  - Fatigue [None]
  - Dizziness [None]
  - Abdominal discomfort [None]
  - Nausea [None]
  - Pain [None]
  - Asthenia [None]

NARRATIVE: CASE EVENT DATE: 20160928
